FAERS Safety Report 4563640-5 (Version None)
Quarter: 2005Q1

REPORT INFORMATION
  Report Type: 
  Country: None (occurrence: None)
  Receive Date: 20050124
  Receipt Date: 20050117
  Transmission Date: 20050727
  Serious: Yes (Death)
  Sender: FDA-Public Use
  Company Number: 200410689BYL

PATIENT
  Age: 69 Year
  Sex: Male

DRUGS (4)
  1. CIPROFLOXACIN HYDROCHLORIDE [Suspect]
     Indication: NASOPHARYNGITIS
     Dosage: 100 MG, TID, ORAL
     Route: 048
     Dates: start: 20041208, end: 20041210
  2. CIPROFLOXACIN HYDROCHLORIDE [Suspect]
     Indication: NASOPHARYNGITIS
     Dosage: 100 MG, TID, ORAL
     Route: 048
     Dates: start: 20041218, end: 20041220
  3. PONTAL (MEFENAMIC ACID) [Suspect]
     Indication: NASOPHARYNGITIS
     Dates: start: 20041208, end: 20041210
  4. CASANMIL [Concomitant]

REACTIONS (8)
  - ACUTE RESPIRATORY DISTRESS SYNDROME [None]
  - DISSEMINATED INTRAVASCULAR COAGULATION [None]
  - HEPATIC FAILURE [None]
  - HEPATITIS FULMINANT [None]
  - HYPOXIA [None]
  - MULTI-ORGAN FAILURE [None]
  - PULMONARY OEDEMA [None]
  - RENAL FAILURE [None]
